FAERS Safety Report 19061703 (Version 1)
Quarter: 2021Q1

REPORT INFORMATION
  Report Type: Spontaneous
  Country: GB (occurrence: GB)
  Receive Date: 20210325
  Receipt Date: 20210325
  Transmission Date: 20210420
  Serious: No
  Sender: FDA-Public Use
  Company Number: GB-MARKSANS PHARMA LIMITED-2108471

PATIENT
  Sex: Male

DRUGS (1)
  1. IBUPROFEN MOLECULE FROM UK MARKET [Suspect]
     Active Substance: IBUPROFEN
     Route: 048

REACTIONS (1)
  - Rash maculo-papular [Recovered/Resolved]
